FAERS Safety Report 9520687 (Version 2)
Quarter: 2013Q4

REPORT INFORMATION
  Report Type: Spontaneous
  Country: US (occurrence: US)
  Receive Date: 20130913
  Receipt Date: 20131001
  Transmission Date: 20140711
  Serious: Yes (Hospitalization)
  Sender: FDA-Public Use
  Company Number: US-009507513-1309USA003852

PATIENT
  Age: 80 Year
  Sex: Female

DRUGS (3)
  1. SINEMET [Suspect]
     Indication: PARKINSON^S DISEASE
     Dosage: 25/100 MG, 2 AND 1/2 TABLETS FIVE TIMES A DAY
     Route: 048
     Dates: start: 200910
  2. DEXTROSE [Concomitant]
     Dosage: UNK
  3. SODIUM CHLORIDE [Concomitant]
     Dosage: UNK

REACTIONS (5)
  - Dehydration [Not Recovered/Not Resolved]
  - Dysphagia [Not Recovered/Not Resolved]
  - Weight decreased [Not Recovered/Not Resolved]
  - Wrong technique in drug usage process [Unknown]
  - Overdose [Unknown]
